FAERS Safety Report 13121124 (Version 1)
Quarter: 2017Q1

REPORT INFORMATION
  Report Type: Spontaneous
  Country: BR (occurrence: BR)
  Receive Date: 20170117
  Receipt Date: 20170117
  Transmission Date: 20170428
  Serious: Yes (Other)
  Sender: FDA-Public Use
  Company Number: BR-JNJFOC-20170110131

PATIENT
  Sex: Male
  Weight: 87 kg

DRUGS (1)
  1. ZYTIGA [Suspect]
     Active Substance: ABIRATERONE ACETATE
     Indication: PROSTATE CANCER METASTATIC
     Dosage: 4 TABLETS IN FASTING, AT LEAST ONE HOUR BEFORE BREAKFAST
     Route: 048

REACTIONS (3)
  - Presyncope [Unknown]
  - Weight increased [Unknown]
  - Emotional disorder [Unknown]
